FAERS Safety Report 4657574-5 (Version None)
Quarter: 2005Q2

REPORT INFORMATION
  Report Type: 
  Country: None (occurrence: None)
  Receive Date: 20050405
  Receipt Date: 20040312
  Transmission Date: 20051028
  Serious: Yes (Other)
  Sender: FDA-Public Use
  Company Number: 2002002578

PATIENT
  Sex: Male
  Weight: 82.1011 kg

DRUGS (4)
  1. GEODON [Suspect]
     Indication: SCHIZOAFFECTIVE DISORDER
     Dosage: 160 MG (BID), ORAL
     Route: 048
     Dates: start: 20020317, end: 20020701
  2. GEODON [Suspect]
     Indication: SCHIZOPHRENIA
     Dosage: 160 MG (BID), ORAL
     Route: 048
     Dates: start: 20020317, end: 20020701
  3. CITALOPRAM [Concomitant]
  4. RABEPRAZOLE SODIUM [Concomitant]

REACTIONS (1)
  - URINARY RETENTION [None]
